FAERS Safety Report 13710437 (Version 1)
Quarter: 2017Q3

REPORT INFORMATION
  Report Type: Spontaneous
  Country: GB (occurrence: GB)
  Receive Date: 20170703
  Receipt Date: 20170703
  Transmission Date: 20171127
  Serious: Yes (Other)
  Sender: FDA-Public Use
  Company Number: GB-JNJFOC-20170624513

PATIENT
  Age: 62 Year
  Sex: Male
  Weight: 140 kg

DRUGS (15)
  1. FUROSEMIDE. [Concomitant]
     Active Substance: FUROSEMIDE
     Dosage: DOSE: 1 (UNIT UNSPECIFIED), EACH MORNING
     Route: 065
     Dates: start: 20161118
  2. ATORVASTATIN [Concomitant]
     Active Substance: ATORVASTATIN
     Dosage: DOSE: 1 (UNIT UNSPECIFIED)
     Route: 065
     Dates: start: 20161118
  3. LIRAGLUTIDE [Concomitant]
     Active Substance: LIRAGLUTIDE
     Dosage: DOSE: 1.2  (UNIT UNSPECIFIED)
     Route: 065
     Dates: start: 20161118, end: 20170507
  4. LANTUS [Concomitant]
     Active Substance: INSULIN GLARGINE
     Indication: DIABETES MELLITUS
     Route: 065
     Dates: start: 20161118
  5. LISINOPRIL. [Concomitant]
     Active Substance: LISINOPRIL
     Dosage: DOSE: 1 (UNIT UNSPECIFIED)
     Route: 065
     Dates: start: 20161118
  6. CANAGLIFLOZIN [Suspect]
     Active Substance: CANAGLIFLOZIN
     Indication: DIABETES MELLITUS
     Route: 065
     Dates: start: 20161118, end: 201706
  7. PARACETAMOL [Concomitant]
     Active Substance: ACETAMINOPHEN
     Dosage: DOSE: 1 (UNIT UNSPECIFIED)
     Route: 065
     Dates: start: 20161118
  8. EZETIMIBE. [Concomitant]
     Active Substance: EZETIMIBE
     Indication: DIABETES MELLITUS
     Dosage: DOSE: 1 (UNIT UNSPECIFIED)
     Route: 065
     Dates: start: 20161118
  9. METFORMIN [Concomitant]
     Active Substance: METFORMIN HYDROCHLORIDE
     Indication: DIABETES MELLITUS
     Dosage: DOSE: 2 (UNIT UNSPECIFIED)
     Route: 065
     Dates: start: 20161118
  10. NOVORAPID [Concomitant]
     Active Substance: INSULIN ASPART
     Indication: DIABETES MELLITUS
     Route: 065
     Dates: start: 20161118
  11. CLOPIDOGREL [Concomitant]
     Active Substance: CLOPIDOGREL BISULFATE
     Dosage: DOSE: 1 (UNIT UNSPECIFIED)
     Route: 065
     Dates: start: 20161118
  12. EZETIMIBE. [Concomitant]
     Active Substance: EZETIMIBE
     Indication: DIABETES MELLITUS
     Route: 065
  13. LEVOTHYROXINE. [Concomitant]
     Active Substance: LEVOTHYROXINE
     Dosage: DOSE: 1 (UNIT UNSPECIFIED)
     Route: 065
     Dates: start: 20161118
  14. TRULICITY [Concomitant]
     Active Substance: DULAGLUTIDE
     Indication: DIABETES MELLITUS
     Dosage: DOSE: 1 (UNIT UNSPECIFIED)
     Route: 065
     Dates: start: 20170522
  15. SITAGLIPTIN [Concomitant]
     Active Substance: SITAGLIPTIN
     Dosage: DOSE: 1 (UNIT UNSPECIFIED)
     Route: 065
     Dates: start: 20161118

REACTIONS (2)
  - Arthralgia [Recovered/Resolved]
  - Myalgia [Recovered/Resolved]

NARRATIVE: CASE EVENT DATE: 20170501
